FAERS Safety Report 4661013-8 (Version None)
Quarter: 2005Q2

REPORT INFORMATION
  Report Type: 
  Country: None (occurrence: None)
  Receive Date: 20050511
  Receipt Date: 20050428
  Transmission Date: 20051028
  Serious: Yes (Other)
  Sender: FDA-Public Use
  Company Number: 2005066870

PATIENT
  Age: 88 Year
  Sex: Male
  Weight: 70.3075 kg

DRUGS (4)
  1. DILANTIN KAPSEAL [Suspect]
     Indication: CONVULSION
     Dosage: 300 MG (300 MG, 1 IN 1 D), ORAL
     Route: 048
     Dates: start: 19660101
  2. ARICEPT [Suspect]
     Indication: MEMORY IMPAIRMENT
     Dosage: ORAL
     Route: 048
     Dates: start: 20030101
  3. ALL OTHER THERAPEUTIC PRODUCTS (ALL OTHER THERAPEUTIC PRODUCTS) [Concomitant]
  4. INSULIN [Concomitant]

REACTIONS (5)
  - AMNESIA [None]
  - BLOOD GLUCOSE DECREASED [None]
  - DRUG INEFFECTIVE [None]
  - EYE DISORDER [None]
  - WEIGHT DECREASED [None]
